FAERS Safety Report 4886500-9 (Version None)
Quarter: 2006Q1

REPORT INFORMATION
  Report Type: 
  Country: None (occurrence: None)
  Receive Date: 20060118
  Receipt Date: 20060105
  Transmission Date: 20060701
  Serious: Yes (Disabling, Other)
  Sender: FDA-Public Use
  Company Number: 2006006354

PATIENT
  Age: 54 Year
  Sex: Female

DRUGS (2)
  1. CELEBREX [Suspect]
     Indication: INTERVERTEBRAL DISC PROTRUSION
     Dosage: ORAL
     Route: 048
  2. VIOXX [Suspect]
     Indication: INTERVERTEBRAL DISC PROTRUSION
     Dosage: ORAL
     Route: 048

REACTIONS (21)
  - ACTIVITIES OF DAILY LIVING IMPAIRED [None]
  - ANGINA PECTORIS [None]
  - ANHEDONIA [None]
  - APPETITE DISORDER [None]
  - ASTHENIA [None]
  - CARDIOVASCULAR DISORDER [None]
  - CHEST PAIN [None]
  - DECREASED INTEREST [None]
  - DEPRESSION [None]
  - DIFFICULTY IN WALKING [None]
  - DISTURBANCE IN ATTENTION [None]
  - FATIGUE [None]
  - FEELINGS OF WORTHLESSNESS [None]
  - HYPERTENSION [None]
  - HYPOAESTHESIA [None]
  - MOVEMENT DISORDER [None]
  - PAIN IN EXTREMITY [None]
  - PSYCHOMOTOR RETARDATION [None]
  - SLEEP DISORDER [None]
  - SWELLING [None]
  - WEIGHT ABNORMAL [None]
